FAERS Safety Report 9580437 (Version 1)
Quarter: 2013Q3

REPORT INFORMATION
  Report Type: Spontaneous
  Country: US (occurrence: None)
  Receive Date: 20130916
  Receipt Date: 20130916
  Transmission Date: 20140515
  Serious: Yes (Other)
  Sender: FDA-Public Use
  Company Number: JPI-P-032218

PATIENT
  Age: 28 Year
  Sex: Female
  Weight: 77.11 kg

DRUGS (8)
  1. XYREM [Suspect]
     Indication: NARCOLEPSY
     Route: 048
     Dates: start: 20130502, end: 20130504
  2. XYREM [Suspect]
     Route: 048
     Dates: start: 20130502, end: 20130504
  3. LEVOTHYROXINE SODIUM [Concomitant]
  4. CITALOPRAM HYDROBROMIDE [Concomitant]
  5. MODAFINIL [Concomitant]
  6. METHYLPHENIDATE [Concomitant]
  7. FLUTICASONE AND SAMETEROL [Concomitant]
  8. ALBUTEROL SULFATE [Concomitant]

REACTIONS (7)
  - Apnoea [None]
  - Somnolence [None]
  - Vomiting [None]
  - Diarrhoea [None]
  - Nausea [None]
  - Headache [None]
  - Hangover [None]
